FAERS Safety Report 16788791 (Version 1)
Quarter: 2019Q3

REPORT INFORMATION
  Report Type: Spontaneous
  Country: US (occurrence: US)
  Receive Date: 20190910
  Receipt Date: 20190910
  Transmission Date: 20191005
  Serious: No
  Sender: FDA-Public Use
  Company Number: US-CIPLA LTD.-2019US03954

PATIENT

DRUGS (1)
  1. ALENDRONATE [Suspect]
     Active Substance: ALENDRONATE SODIUM
     Indication: BLOOD CALCIUM INCREASED
     Dosage: 70 MILLIGRAM, ONCE A WEEK
     Route: 048
     Dates: start: 201904

REACTIONS (4)
  - Hypercalcaemia [Not Recovered/Not Resolved]
  - Product use in unapproved indication [Unknown]
  - Off label use [Unknown]
  - Bone decalcification [Unknown]

NARRATIVE: CASE EVENT DATE: 201904
